FAERS Safety Report 22351976 (Version 1)
Quarter: 2023Q2

REPORT INFORMATION
  Report Type: Spontaneous
  Country: US (occurrence: None)
  Receive Date: 20230522
  Receipt Date: 20230522
  Transmission Date: 20230721
  Serious: No
  Sender: FDA-Public Use
  Company Number: None

PATIENT
  Sex: Female

DRUGS (2)
  1. REMODULIN [Suspect]
     Active Substance: TREPROSTINIL
     Indication: Pulmonary arterial hypertension
     Dosage: OTHER QUANTITY : 88NG/KG/MIN?OTHER FREQUENCY : CONTINUOUS?
     Route: 042
     Dates: start: 20210324
  2. DEVICE [Suspect]
     Active Substance: DEVICE

REACTIONS (3)
  - Device malfunction [None]
  - Fatigue [None]
  - Therapy interrupted [None]
